FAERS Safety Report 12396401 (Version 4)
Quarter: 2016Q2

REPORT INFORMATION
  Report Type: Report from Study
  Country: US (occurrence: US)
  Receive Date: 20160524
  Receipt Date: 20160616
  Transmission Date: 20160815
  Serious: Yes (Hospitalization)
  Sender: FDA-Public Use
  Company Number: US-HORIZON-RAV-0096-2016

PATIENT
  Sex: Male
  Weight: 30 kg

DRUGS (3)
  1. RAVICTI [Suspect]
     Active Substance: GLYCEROL PHENYLBUTYRATE
     Indication: PRODUCT USED FOR UNKNOWN INDICATION
     Dosage: 5 ML TID
  2. CITRULLINE [Concomitant]
     Active Substance: CITRULLINE
  3. CYCLINEX [Concomitant]

REACTIONS (4)
  - Weight decreased [Recovered/Resolved]
  - Decreased appetite [Recovered/Resolved]
  - Cholelithiasis [Not Recovered/Not Resolved]
  - Appendicitis perforated [Unknown]

NARRATIVE: CASE EVENT DATE: 20160501
